FAERS Safety Report 5507505-0 (Version None)
Quarter: 2007Q4

REPORT INFORMATION
  Report Type: 
  Country: None (occurrence: None)
  Receive Date: 20071106
  Receipt Date: 20071029
  Transmission Date: 20080405
  Serious: Yes (Death)
  Sender: FDA-Public Use
  Company Number: JP-ELI_LILLY_AND_COMPANY-JP200710007118

PATIENT

DRUGS (2)
  1. PEMETREXED [Suspect]
     Indication: PLEURAL MESOTHELIOMA MALIGNANT
     Route: 042
  2. PARAPLATIN [Concomitant]
     Indication: PLEURAL MESOTHELIOMA MALIGNANT
     Route: 042

REACTIONS (1)
  - SEPSIS [None]
